FAERS Safety Report 24382239 (Version 1)
Quarter: 2024Q4

REPORT INFORMATION
  Report Type: Spontaneous
  Country: CN (occurrence: CN)
  Receive Date: 20241001
  Receipt Date: 20241001
  Transmission Date: 20250115
  Serious: Yes (Other)
  Sender: SANOFI AVENTIS
  Company Number: CN-SA-2024SA279121

PATIENT
  Age: 66 Year
  Sex: Male

DRUGS (4)
  1. ZOLPIDEM TARTRATE [Suspect]
     Active Substance: ZOLPIDEM TARTRATE
     Indication: Sleep disorder
     Dosage: 10 MG, QD BEFORE SLEEP
     Route: 048
     Dates: start: 20240717, end: 20240719
  2. MOSAPRIDE CITRATE [Suspect]
     Active Substance: MOSAPRIDE CITRATE
     Indication: Decreased appetite
     Dosage: 5 MG, TID BEFORE MEALS
     Route: 048
     Dates: start: 20240717, end: 20240723
  3. BUDESONIDE [Concomitant]
     Active Substance: BUDESONIDE
     Indication: Pneumonia
     Dosage: 1 MG, BID, SUSPENSION FOR INHALATION
     Route: 055
     Dates: start: 20240718, end: 20240724
  4. TERBUTALINE SULFATE [Concomitant]
     Active Substance: TERBUTALINE SULFATE
     Indication: Pneumonia
     Dosage: 5 MG, BID
     Route: 055
     Dates: start: 20240718, end: 20240724

REACTIONS (4)
  - Unresponsive to stimuli [Recovered/Resolved]
  - Pupillary reflex impaired [Recovering/Resolving]
  - Somnolence [Recovering/Resolving]
  - Asthenia [Recovering/Resolving]

NARRATIVE: CASE EVENT DATE: 20240719
